FAERS Safety Report 10343279 (Version 1)
Quarter: 2014Q3

REPORT INFORMATION
  Report Type: Spontaneous
  Country: DE (occurrence: DE)
  Receive Date: 20140725
  Receipt Date: 20140725
  Transmission Date: 20150326
  Serious: Yes (Congenital Anomaly, Other)
  Sender: FDA-Public Use
  Company Number: DE-WATSON-2014-15949

PATIENT

DRUGS (2)
  1. LAMOTRIGINE (UNKNOWN) [Suspect]
     Active Substance: LAMOTRIGINE
     Indication: BORDERLINE PERSONALITY DISORDER
     Dosage: 100 MG, DAILY
     Route: 064
     Dates: start: 20140217, end: 20140331
  2. FOLSAN [Concomitant]
     Active Substance: FOLIC ACID
     Indication: PROPHYLAXIS OF NEURAL TUBE DEFECT
     Dosage: 0.4 MG, UNK
     Route: 064
     Dates: start: 20140315, end: 20140520

REACTIONS (4)
  - Exomphalos [Not Recovered/Not Resolved]
  - Kyphoscoliosis [Not Recovered/Not Resolved]
  - Umbilical cord short [Not Recovered/Not Resolved]
  - Foetal exposure during pregnancy [Not Recovered/Not Resolved]
